FAERS Safety Report 5265701-4 (Version None)
Quarter: 2007Q1

REPORT INFORMATION
  Report Type: 
  Country: None (occurrence: None)
  Receive Date: 20061213
  Receipt Date: 20040225
  Transmission Date: 20070707
  Serious: Yes (Other)
  Sender: FDA-Public Use
  Company Number: 2004UW03378

PATIENT
  Age: 74 Year
  Sex: Female

DRUGS (11)
  1. IRESSA [Suspect]
     Dosage: 250 MG PO
     Route: 048
  2. TOPROL-XL [Concomitant]
  3. NEXIUM [Concomitant]
  4. FUROSEMIDE [Concomitant]
  5. KLOR-CON [Concomitant]
  6. FLEXORAL [Concomitant]
  7. TRAMADOL HCL [Concomitant]
  8. METHYLPREDNISOLONE 16MG TAB [Concomitant]
  9. AMBIEN [Concomitant]
  10. ROXICET [Concomitant]
  11. MAGNESIUM ^CINFA^ [Concomitant]

REACTIONS (3)
  - DIARRHOEA [None]
  - DYSPEPSIA [None]
  - NAUSEA [None]
